FAERS Safety Report 9295129 (Version 1)
Quarter: 2013Q2

REPORT INFORMATION
  Report Type: Spontaneous
  Country: US (occurrence: None)
  Receive Date: 20130516
  Receipt Date: 20130516
  Transmission Date: 20140414
  Serious: Yes (Other)
  Sender: FDA-Public Use
  Company Number: None

PATIENT
  Age: 35 Year
  Sex: Female
  Weight: 81.65 kg

DRUGS (1)
  1. MONODOX [Suspect]
     Indication: ACNE
     Dosage: 2CAPSULES
     Route: 048
     Dates: start: 20130513, end: 20130515

REACTIONS (4)
  - Migraine with aura [None]
  - Nausea [None]
  - Pain [None]
  - Product label issue [None]
